FAERS Safety Report 24583358 (Version 3)
Quarter: 2024Q4

REPORT INFORMATION
  Report Type: Spontaneous
  Country: JP (occurrence: JP)
  Receive Date: 20241106
  Receipt Date: 20241210
  Transmission Date: 20250115
  Serious: Yes (Hospitalization)
  Sender: ROCHE
  Company Number: JP-CHUGAI-2024038685AA

PATIENT
  Age: 5 Decade
  Sex: Female
  Weight: 47 kg

DRUGS (1)
  1. PHESGO [Suspect]
     Active Substance: HYALURONIDASE-ZZXF\PERTUZUMAB\TRASTUZUMAB
     Indication: Breast cancer
     Dosage: ONCE/3WEEKS
     Route: 050
     Dates: start: 20240822

REACTIONS (3)
  - Pain in extremity [Recovering/Resolving]
  - Motor dysfunction [Recovering/Resolving]
  - Pain in extremity [Unknown]

NARRATIVE: CASE EVENT DATE: 20241024
